FAERS Safety Report 5464202-8 (Version None)
Quarter: 2007Q3

REPORT INFORMATION
  Report Type: 
  Country: None (occurrence: None)
  Receive Date: 20070921
  Receipt Date: 20070914
  Transmission Date: 20080115
  Serious: Yes (Hospitalization)
  Sender: FDA-Public Use
  Company Number: US-AMGEN-US243585

PATIENT
  Sex: Male
  Weight: 54.9 kg

DRUGS (9)
  1. PROCRIT [Suspect]
     Indication: DRUG USE FOR UNKNOWN INDICATION
  2. PAXIL [Concomitant]
  3. ZOMETA [Concomitant]
  4. NORVASC [Concomitant]
  5. COUMADIN [Concomitant]
  6. SENNA [Concomitant]
  7. AMBIEN [Concomitant]
  8. VITAMIN CAP [Concomitant]
  9. COLACE [Concomitant]

REACTIONS (2)
  - FEMUR FRACTURE [None]
  - GENERAL PHYSICAL HEALTH DETERIORATION [None]
